FAERS Safety Report 7510038-3 (Version None)
Quarter: 2011Q2

REPORT INFORMATION
  Report Type: 
  Country: None (occurrence: None)
  Receive Date: 20110527
  Receipt Date: 20110516
  Transmission Date: 20111010
  Serious: Yes (Hospitalization)
  Sender: FDA-Public Use
  Company Number: JP-ROCHE-779114

PATIENT
  Sex: Male
  Weight: 55 kg

DRUGS (1)
  1. ACTEMRA [Suspect]
     Indication: RHEUMATOID ARTHRITIS
     Route: 065
     Dates: start: 20100616

REACTIONS (3)
  - DEEP VEIN THROMBOSIS [None]
  - CELLULITIS [None]
  - RHEUMATOID ARTHRITIS [None]
